FAERS Safety Report 5793032-2 (Version None)
Quarter: 2008Q2

REPORT INFORMATION
  Report Type: 
  Country: None (occurrence: None)
  Receive Date: 20080627
  Receipt Date: 20080618
  Transmission Date: 20081010
  Serious: Yes (Life-Threatening, Other)
  Sender: FDA-Public Use
  Company Number: US-NOVOPROD-274770

PATIENT
  Age: 29 Year
  Sex: Male

DRUGS (1)
  1. NOVOLIN 70/30 [Suspect]
     Indication: INSULIN-REQUIRING TYPE 2 DIABETES MELLITUS
     Dosage: SLIDING SCALE
     Route: 058
     Dates: start: 20060101

REACTIONS (3)
  - BLOOD GLUCOSE FLUCTUATION [None]
  - DEHYDRATION [None]
  - HYPOGLYCAEMIC UNCONSCIOUSNESS [None]
